FAERS Safety Report 12876003 (Version 1)
Quarter: 2016Q4

REPORT INFORMATION
  Report Type: Spontaneous
  Country: US (occurrence: US)
  Receive Date: 20161024
  Receipt Date: 20161024
  Transmission Date: 20170207
  Serious: No
  Sender: FDA-Public Use
  Company Number: US-JAZZ-2016-US-015272

PATIENT
  Sex: Female

DRUGS (33)
  1. XYREM [Suspect]
     Active Substance: SODIUM OXYBATE
     Indication: NARCOLEPSY
     Dosage: 4 G, BID
     Route: 048
     Dates: start: 200712, end: 201206
  2. XYREM [Suspect]
     Active Substance: SODIUM OXYBATE
     Dosage: DOSE ADJUSTMENTS
     Route: 048
     Dates: start: 201512, end: 201512
  3. NICOTROL [Concomitant]
     Active Substance: NICOTINE
  4. REMERON [Concomitant]
     Active Substance: MIRTAZAPINE
  5. TRIAZOLAM. [Concomitant]
     Active Substance: TRIAZOLAM
  6. MIRENA [Concomitant]
     Active Substance: LEVONORGESTREL
  7. LAMICTAL [Concomitant]
     Active Substance: LAMOTRIGINE
  8. ADVAIR HFA [Concomitant]
     Active Substance: FLUTICASONE PROPIONATE\SALMETEROL XINAFOATE
  9. SINGULAIR [Concomitant]
     Active Substance: MONTELUKAST SODIUM
  10. ZOCOR [Concomitant]
     Active Substance: SIMVASTATIN
  11. XYREM [Suspect]
     Active Substance: SODIUM OXYBATE
     Dosage: 4.5 G, BID
     Route: 048
     Dates: start: 201401, end: 2015
  12. LATUDA [Concomitant]
     Active Substance: LURASIDONE HYDROCHLORIDE
  13. RANITIDINE. [Concomitant]
     Active Substance: RANITIDINE
  14. BENADRYL ALLERGY [Concomitant]
     Active Substance: DIPHENHYDRAMINE HYDROCHLORIDE
  15. MIRAPEX [Concomitant]
     Active Substance: PRAMIPEXOLE DIHYDROCHLORIDE
  16. XANAX [Concomitant]
     Active Substance: ALPRAZOLAM
  17. REGLAN [Concomitant]
     Active Substance: METOCLOPRAMIDE HYDROCHLORIDE
  18. XYREM [Suspect]
     Active Substance: SODIUM OXYBATE
     Dosage: DOSE ADJUSTMENTS
     Route: 048
     Dates: start: 201206, end: 201401
  19. XYREM [Suspect]
     Active Substance: SODIUM OXYBATE
     Dosage: 2.25 G, BID
     Route: 048
     Dates: start: 201512, end: 201512
  20. COLACE [Concomitant]
     Active Substance: DOCUSATE SODIUM
  21. ALBUTEROL. [Concomitant]
     Active Substance: ALBUTEROL
  22. PREVACID [Concomitant]
     Active Substance: LANSOPRAZOLE
  23. DIOVAN [Concomitant]
     Active Substance: VALSARTAN
  24. IBUPROFEN. [Concomitant]
     Active Substance: IBUPROFEN
  25. PROAIR HFA [Concomitant]
     Active Substance: ALBUTEROL SULFATE
  26. VENLAFAXINE HCL [Concomitant]
     Active Substance: VENLAFAXINE HYDROCHLORIDE
  27. CHANTIX [Concomitant]
     Active Substance: VARENICLINE TARTRATE
  28. DESIPRAMINE [Concomitant]
     Active Substance: DESIPRAMINE
  29. XYREM [Suspect]
     Active Substance: SODIUM OXYBATE
     Dosage: 4.5 G, BID
     Route: 048
     Dates: start: 201512
  30. ALBUTEROL HFA [Concomitant]
     Active Substance: ALBUTEROL SULFATE
  31. ADDERALL [Concomitant]
     Active Substance: AMPHETAMINE ASPARTATE\AMPHETAMINE SULFATE\DEXTROAMPHETAMINE SACCHARATE\DEXTROAMPHETAMINE SULFATE
  32. ABILIFY [Concomitant]
     Active Substance: ARIPIPRAZOLE
  33. CONCERTA [Concomitant]
     Active Substance: METHYLPHENIDATE HYDROCHLORIDE

REACTIONS (3)
  - Therapeutic response unexpected [Unknown]
  - Anxiety [Unknown]
  - Pre-existing condition improved [Unknown]
